FAERS Safety Report 14044396 (Version 1)
Quarter: 2017Q4

REPORT INFORMATION
  Report Type: Spontaneous
  Country: DE (occurrence: DE)
  Receive Date: 20171004
  Receipt Date: 20171004
  Transmission Date: 20180321
  Serious: No
  Sender: FDA-Public Use
  Company Number: DE-B. BRAUN MEDICAL INC.-2028762

PATIENT
  Sex: Female

DRUGS (1)
  1. METRONIDAZOLE. [Suspect]
     Active Substance: METRONIDAZOLE

REACTIONS (3)
  - Nausea [Unknown]
  - Plicated tongue [Unknown]
  - Swollen tongue [Unknown]
